FAERS Safety Report 16510600 (Version 1)
Quarter: 2019Q3

REPORT INFORMATION
  Report Type: Spontaneous
  Country: US (occurrence: US)
  Receive Date: 20190701
  Receipt Date: 20190701
  Transmission Date: 20191004
  Serious: Yes (Hospitalization)
  Sender: FDA-Public Use
  Company Number: None

PATIENT
  Age: 12 Year
  Sex: Male

DRUGS (2)
  1. NORDITROPIN [Suspect]
     Active Substance: SOMATROPIN
     Indication: BODY HEIGHT BELOW NORMAL
     Route: 058
     Dates: start: 20180327
  2. CALCIUM CIT/TAB VIT D [Concomitant]

REACTIONS (2)
  - Therapy cessation [None]
  - Appendicectomy [None]

NARRATIVE: CASE EVENT DATE: 20190601
